FAERS Safety Report 8628412 (Version 4)
Quarter: 2013Q1

REPORT INFORMATION
  Report Type: Report from Study
  Country: JP (occurrence: JP)
  Receive Date: 20120606
  Receipt Date: 20130213
  Transmission Date: 20140127
  Serious: Yes (Hospitalization, Other)
  Sender: FDA-Public Use
  Company Number: JP-009507513-2012SP029232

PATIENT
  Age: 64 Year
  Sex: Female
  Weight: 53 kg

DRUGS (18)
  1. PEGINTRON [Suspect]
     Indication: CHRONIC HEPATITIS C
     Dosage: 1.5 MICROGRAM PER KILOGRAM, UNK
     Route: 058
     Dates: start: 20120403, end: 20120529
  2. PEGINTRON [Suspect]
     Dosage: 1.5 MICROGRAM PER KILOGRAM, QW
     Route: 058
     Dates: start: 20120622
  3. REBETOL [Suspect]
     Indication: CHRONIC HEPATITIS C
     Dosage: 600 MG, QD
     Route: 048
     Dates: start: 20120403, end: 20120406
  4. REBETOL [Suspect]
     Dosage: 600 MG, QD
     Route: 048
     Dates: start: 20120410, end: 20120501
  5. REBETOL [Suspect]
     Dosage: 400 MG, QD
     Route: 048
     Dates: start: 20120502, end: 20120524
  6. REBETOL [Suspect]
     Dosage: 200 MG, UNK
     Route: 048
     Dates: start: 20120622
  7. TELAVIC [Suspect]
     Indication: CHRONIC HEPATITIS C
     Dosage: 2250 MG, QD
     Route: 048
     Dates: start: 20120403, end: 20120406
  8. TELAVIC [Suspect]
     Dosage: 2250 MG, QD
     Route: 048
     Dates: start: 20120417, end: 20120524
  9. ALLEGRA [Concomitant]
     Indication: PROPHYLAXIS
     Dosage: 120 MG, QD
     Route: 048
  10. RINDERON VG [Concomitant]
     Indication: ERYTHEMA
     Dosage: FORMULATION : LOTION
     Route: 065
  11. URSO [Concomitant]
     Indication: CHRONIC HEPATITIS C
     Dosage: 600 MG, QD
     Route: 048
     Dates: end: 20120408
  12. ROHYPNOL [Concomitant]
     Indication: INSOMNIA
     Dosage: 2 MG, QD
     Route: 048
     Dates: end: 20120430
  13. ROHYPNOL [Concomitant]
     Dosage: 2 MG, QD
     Route: 048
     Dates: start: 20120601, end: 20120622
  14. MAGMITT [Concomitant]
     Indication: PROPHYLAXIS
     Dosage: 990 MG, QD
     Route: 048
     Dates: start: 20120403
  15. LOXOPROFEN [Concomitant]
     Indication: PROPHYLAXIS
     Dosage: 180 MG, ONCE
     Route: 048
     Dates: start: 20120403, end: 20120606
  16. SELBEX [Concomitant]
     Indication: PROPHYLAXIS
     Dosage: 150 MG, QD
     Route: 048
     Dates: start: 20120403, end: 20120606
  17. HIRUDOID SOFT [Concomitant]
     Indication: ERYTHEMA
     Dosage: UPDATE (08JUN2012)
     Route: 065
     Dates: start: 20120405
  18. ALLOPURINOL [Concomitant]
     Indication: PROPHYLAXIS
     Dosage: 200 MG, QD
     Route: 048
     Dates: start: 20120530, end: 20120606

REACTIONS (3)
  - Haemoglobin decreased [Not Recovered/Not Resolved]
  - Ascites [Recovering/Resolving]
  - Pancytopenia [Recovering/Resolving]
